FAERS Safety Report 8861825 (Version 1)
Quarter: 2012Q4

REPORT INFORMATION
  Report Type: 
  Country: US (occurrence: US)
  Receive Date: 20121025
  Receipt Date: 20121025
  Transmission Date: 20130627
  Serious: No
  Sender: FDA-Public Use
  Company Number: US-AMGEN-USASP2012022403

PATIENT
  Age: 30 Year
  Sex: Male

DRUGS (6)
  1. ENBREL [Suspect]
     Indication: RHEUMATOID ARTHRITIS
     Dosage: 50 mg, qwk
     Route: 058
  2. METHOTREXATE [Concomitant]
     Dosage: 2.5 mg, UNK
     Route: 048
  3. PREDNISONE [Concomitant]
     Dosage: 10 mg, UNK
     Route: 048
  4. NABUMETONE [Concomitant]
     Dosage: 500 mg, UNK
     Route: 048
  5. FOLIC ACID [Concomitant]
     Dosage: UNK
     Route: 048
  6. GINKOBA [Concomitant]
     Dosage: 400 mg, UNK
     Route: 048

REACTIONS (1)
  - Injection site reaction [Unknown]
